FAERS Safety Report 25245392 (Version 1)
Quarter: 2025Q2

REPORT INFORMATION
  Report Type: Spontaneous
  Country: CA (occurrence: None)
  Receive Date: 20250426
  Receipt Date: 20250426
  Transmission Date: 20250717
  Serious: Yes (Disabling)
  Sender: FDA-CTU
  Company Number: None

PATIENT
  Age: 26 Year
  Sex: Female
  Weight: 60.75 kg

DRUGS (2)
  1. DYSPORT [Suspect]
     Active Substance: ABOBOTULINUMTOXINA
     Indication: Neuromyopathy
     Route: 030
     Dates: start: 20250325
  2. BOTOX [Suspect]
     Active Substance: ONABOTULINUMTOXINA

REACTIONS (23)
  - Dysphagia [None]
  - Muscular weakness [None]
  - Muscle spasms [None]
  - Visual impairment [None]
  - Panic disorder [None]
  - Depression [None]
  - Decreased appetite [None]
  - Palpitations [None]
  - Autoimmune disorder [None]
  - Migraine [None]
  - Brain fog [None]
  - Neurotoxicity [None]
  - Autonomic nervous system imbalance [None]
  - Fatigue [None]
  - Vitreous floaters [None]
  - Paraesthesia [None]
  - Hypoaesthesia [None]
  - Neuralgia [None]
  - Anxiety [None]
  - Constipation [None]
  - Polyuria [None]
  - Chest pain [None]
  - Musculoskeletal chest pain [None]

NARRATIVE: CASE EVENT DATE: 20250325
